FAERS Safety Report 18534826 (Version 2)
Quarter: 2020Q4

REPORT INFORMATION
  Report Type: Spontaneous
  Country: DE (occurrence: DE)
  Receive Date: 20201123
  Receipt Date: 20201221
  Transmission Date: 20210114
  Serious: No
  Sender: FDA-Public Use
  Company Number: DE-GW PHARMA-202011DEGW03942

PATIENT

DRUGS (15)
  1. CLOBAZAM. [Concomitant]
     Active Substance: CLOBAZAM
     Indication: SEIZURE
     Dosage: 5 MILLIGRAM, QD (IN EVENING)
     Route: 065
  2. VALPROATE [Concomitant]
     Active Substance: VALPROIC ACID
     Indication: SEIZURE
     Dosage: UNK
     Route: 065
  3. LEVETIRACETAM. [Concomitant]
     Active Substance: LEVETIRACETAM
     Indication: SEIZURE
     Dosage: UNK
     Route: 065
  4. PHENOBARBITAL. [Concomitant]
     Active Substance: PHENOBARBITAL
     Indication: SEIZURE
     Dosage: UNK
     Route: 065
  5. EPIDIOLEX [Interacting]
     Active Substance: CANNABIDIOL
     Dosage: 20 MG/KG, 1000 MILLIGRAM, QD
     Route: 048
  6. LAMOTRIGINE. [Concomitant]
     Active Substance: LAMOTRIGINE
     Indication: SEIZURE
     Dosage: UNK
     Route: 065
  7. TOPIRAMATE. [Concomitant]
     Active Substance: TOPIRAMATE
     Indication: SEIZURE
     Dosage: UNK
     Route: 065
  8. EPIDIOLEX [Interacting]
     Active Substance: CANNABIDIOL
     Dosage: 10 MG/KG/DAY, 500 MILLIGRAM, QD (2ML-0-3ML)
     Route: 048
  9. SULTHIAME [Concomitant]
     Active Substance: SULTHIAME
     Indication: SEIZURE
     Dosage: UNK
     Route: 065
  10. PERAMPANEL [Interacting]
     Active Substance: PERAMPANEL
     Indication: SEIZURE
     Dosage: UNK
     Route: 065
  11. CLOBAZAM. [Concomitant]
     Active Substance: CLOBAZAM
     Dosage: DOSE INCREASED
     Route: 065
  12. EPIDIOLEX [Suspect]
     Active Substance: CANNABIDIOL
     Indication: SEVERE MYOCLONIC EPILEPSY OF INFANCY
     Dosage: 4 MG/KG/DAY, 100 MILLIGRAM, BID (1ML-0-1ML, WEEKLY INCREASE BY 2 ML PER DAY)
     Route: 048
  13. BROMIDE [Concomitant]
     Indication: SEIZURE
     Dosage: UNK
     Route: 065
  14. STIRIPENTOL [Concomitant]
     Active Substance: STIRIPENTOL
     Indication: SEIZURE
     Dosage: UNK
     Route: 065
  15. ZONISAMIDE. [Concomitant]
     Active Substance: ZONISAMIDE
     Indication: SEIZURE
     Dosage: UNK
     Route: 065

REACTIONS (4)
  - Sedation [Recovering/Resolving]
  - Drug interaction [Unknown]
  - Condition aggravated [Recovering/Resolving]
  - Irritability [Recovering/Resolving]
